FAERS Safety Report 12524647 (Version 3)
Quarter: 2016Q3

REPORT INFORMATION
  Report Type: Other
  Country: GB (occurrence: GB)
  Receive Date: 20160704
  Receipt Date: 20160721
  Transmission Date: 20161109
  Serious: Yes (Other)
  Sender: FDA-Public Use
  Company Number: GB-APOTEX-2016AP009462

PATIENT
  Age: 34 Year
  Sex: Female

DRUGS (7)
  1. PAROXETINE. [Suspect]
     Active Substance: PAROXETINE
     Dosage: UNK
     Route: 065
     Dates: end: 200101
  2. PAROXETINE. [Suspect]
     Active Substance: PAROXETINE
     Indication: PRODUCT USED FOR UNKNOWN INDICATION
     Dosage: 20 MG, DAILY
     Route: 065
     Dates: start: 19980507
  3. PAROXETINE. [Suspect]
     Active Substance: PAROXETINE
     Dosage: 30 MG, QD
     Route: 065
     Dates: start: 19990603, end: 20001127
  4. PAXIL [Suspect]
     Active Substance: PAROXETINE HYDROCHLORIDE
     Indication: PRODUCT USED FOR UNKNOWN INDICATION
     Dosage: UNK
     Route: 065
     Dates: start: 19980507
  5. PAROXETINE. [Suspect]
     Active Substance: PAROXETINE
     Dosage: 30 MG, DAILY
     Route: 065
     Dates: start: 199806
  6. PAXIL [Suspect]
     Active Substance: PAROXETINE HYDROCHLORIDE
     Dosage: 20 MG, QD
     Route: 065
     Dates: start: 19990827
  7. CITALOPRAM [Concomitant]
     Active Substance: CITALOPRAM HYDROBROMIDE
     Indication: PRODUCT USED FOR UNKNOWN INDICATION
     Dosage: UNK
     Route: 065

REACTIONS (15)
  - Depression [Unknown]
  - Dizziness [Unknown]
  - Drug dependence [Unknown]
  - Fear [Unknown]
  - Hyperacusis [Unknown]
  - Insomnia [Unknown]
  - Ill-defined disorder [Unknown]
  - Self esteem decreased [Unknown]
  - Psychiatric symptom [Recovered/Resolved]
  - Anxiety [Unknown]
  - Paraesthesia [Recovered/Resolved]
  - Dissociation [Unknown]
  - Panic attack [Recovered/Resolved]
  - Drug withdrawal syndrome [Unknown]
  - Headache [Unknown]

NARRATIVE: CASE EVENT DATE: 200010
